FAERS Safety Report 9030885 (Version 2)
Quarter: 2013Q2

REPORT INFORMATION
  Report Type: Spontaneous
  Country: US (occurrence: US)
  Receive Date: 20130123
  Receipt Date: 20130405
  Transmission Date: 20140414
  Serious: No
  Sender: FDA-Public Use
  Company Number: US-B.I. PHARMACEUTICALS,INC./RIDGEFIELD-2013-BI-01012BP

PATIENT
  Age: 67 Year
  Sex: Female

DRUGS (17)
  1. SPIRIVA [Suspect]
     Indication: CHRONIC OBSTRUCTIVE PULMONARY DISEASE
     Dosage: 18 MCG
     Route: 055
     Dates: start: 201212
  2. HYDROCHLOROTHIAZIDE [Concomitant]
     Indication: HYPERTENSION
     Dosage: 25 MG
     Route: 048
  3. CETIRIZINE [Concomitant]
     Dosage: 10 MG
     Route: 048
  4. VERAPAMIL [Concomitant]
     Indication: TACHYCARDIA
     Dosage: 120 MG
     Route: 048
  5. SIMVASTATIN [Concomitant]
     Indication: BLOOD CHOLESTEROL INCREASED
     Dosage: 40 MG
     Route: 048
  6. GEMFIBROZIL [Concomitant]
     Indication: BLOOD TRIGLYCERIDES INCREASED
     Dosage: 1200 MG
     Route: 048
  7. SYMBICORT [Concomitant]
     Route: 055
  8. EFFEXOR [Concomitant]
     Dosage: 75 MG
     Route: 048
  9. WELLBUTRIN [Concomitant]
     Indication: BIPOLAR DISORDER
     Dosage: 300 MG
     Route: 048
  10. PEPCID [Concomitant]
     Indication: ANGIOEDEMA
     Dosage: 40 MG
     Route: 048
  11. ESTRACE [Concomitant]
     Dosage: 1 MG
     Route: 048
  12. PROVERA [Concomitant]
     Dosage: 2.5 MG
     Route: 048
  13. NEXIUM [Concomitant]
     Indication: GASTROOESOPHAGEAL REFLUX DISEASE
     Dosage: 40 MG
     Route: 048
  14. NEXIUM [Concomitant]
     Indication: IRRITABLE BOWEL SYNDROME
  15. EVISTA [Concomitant]
     Indication: OSTEOPOROSIS
     Route: 048
  16. LEVOTHYROXINE [Concomitant]
     Indication: HYPOTHYROIDISM
     Dosage: 50 MCG
     Route: 048
  17. METOPROLOL [Concomitant]
     Indication: TACHYCARDIA
     Dosage: 50 MG
     Route: 048

REACTIONS (4)
  - Cough [Not Recovered/Not Resolved]
  - Product quality issue [Recovered/Resolved]
  - Product quality issue [Recovered/Resolved]
  - Product quality issue [Recovered/Resolved]
